FAERS Safety Report 5724352-5 (Version None)
Quarter: 2008Q2

REPORT INFORMATION
  Report Type: 
  Country: None (occurrence: None)
  Receive Date: 20080430
  Receipt Date: 20080414
  Transmission Date: 20081010
  Serious: Yes (Hospitalization)
  Sender: FDA-Public Use
  Company Number: JP-PFIZER INC-2008034342

PATIENT
  Age: 33 Year
  Sex: Female

DRUGS (1)
  1. ADRIACIN [Suspect]
     Indication: ACUTE MYELOID LEUKAEMIA
     Route: 042

REACTIONS (2)
  - CARDIO-RESPIRATORY ARREST [None]
  - CARDIOMYOPATHY [None]
